FAERS Safety Report 12397352 (Version 1)
Quarter: 2016Q2

REPORT INFORMATION
  Report Type: Spontaneous
  Country: US (occurrence: US)
  Receive Date: 20160524
  Receipt Date: 20160524
  Transmission Date: 20160815
  Serious: No
  Sender: FDA-Public Use
  Company Number: US-PFIZER INC-2016268408

PATIENT
  Age: 57 Year
  Sex: Male
  Weight: 72.12 kg

DRUGS (2)
  1. VFEND [Suspect]
     Active Substance: VORICONAZOLE
     Indication: LUNG INFECTION
     Dosage: 300MG; ONE AND HALF TABLET IN MORNING AND ONE AND HALF AT NIGHT
     Dates: start: 2015
  2. PREDNISONE. [Concomitant]
     Active Substance: PREDNISONE
     Dosage: UNK

REACTIONS (2)
  - Oral discomfort [Not Recovered/Not Resolved]
  - Lip dry [Not Recovered/Not Resolved]
